FAERS Safety Report 9577664 (Version 2)
Quarter: 2013Q4

REPORT INFORMATION
  Report Type: Spontaneous
  Country: US (occurrence: US)
  Receive Date: 20131001
  Receipt Date: 20131001
  Transmission Date: 20140711
  Serious: No
  Sender: FDA-Public Use
  Company Number: US-AMGEN-USASP2013006469

PATIENT
  Sex: Female
  Weight: 99.77 kg

DRUGS (8)
  1. ENBREL [Suspect]
     Indication: RHEUMATOID ARTHRITIS
     Dosage: 50 MG, QWK
     Route: 058
  2. REQUIP [Concomitant]
     Dosage: 1 MG, UNK
  3. METHOTREXATE [Concomitant]
     Dosage: 2.5 MG, UNK
  4. IBUPROFEN [Concomitant]
     Dosage: 200 MG, UNK
  5. MULTIVITAMINS, PLAIN [Concomitant]
     Dosage: UNK
  6. VITAMIN D                          /00107901/ [Concomitant]
     Dosage: 1000 IU, UNK
  7. FOLIC ACID [Concomitant]
     Dosage: 5 MG, UNK
  8. LEVOFLOXACIN [Concomitant]
     Dosage: 250 MG, UNK

REACTIONS (5)
  - Restless legs syndrome [Unknown]
  - Sinusitis [Unknown]
  - Teeth brittle [Unknown]
  - Tooth fracture [Unknown]
  - Headache [Unknown]
